FAERS Safety Report 10201229 (Version 1)
Quarter: 2014Q2

REPORT INFORMATION
  Report Type: Spontaneous
  Country: US (occurrence: US)
  Receive Date: 20140528
  Receipt Date: 20140528
  Transmission Date: 20141212
  Serious: Yes (Hospitalization)
  Sender: FDA-Public Use
  Company Number: US-SA-2014SA065349

PATIENT
  Age: 66 Year
  Sex: Female

DRUGS (4)
  1. LANTUS [Suspect]
     Indication: DIABETES MELLITUS
     Dosage: DOSE:42 UNIT(S)
     Route: 065
  2. LANTUS [Suspect]
     Indication: DIABETES MELLITUS
     Dosage: DOSE:50 UNIT(S)
     Route: 065
  3. NOVOLOG [Concomitant]
     Dosage: 7 UNITS OF NOVALOG WITH EACH MEAL
  4. NOVOLOG [Concomitant]
     Dosage: 17UNITS OF NOVALOG WITH EACH MEAL

REACTIONS (1)
  - Cardiac operation [Unknown]
